FAERS Safety Report 4545821-X (Version None)
Quarter: 2005Q1

REPORT INFORMATION
  Report Type: 
  Country: None (occurrence: None)
  Receive Date: 20050103
  Receipt Date: 20041223
  Transmission Date: 20050727
  Serious: Yes (Other)
  Sender: FDA-Public Use
  Company Number: 2004114504

PATIENT
  Age: 57 Year
  Sex: Male

DRUGS (13)
  1. CEREBYX [Suspect]
     Indication: EPILEPSY
     Dosage: 300 MG (2 MG/ML, 3 IN 1D), INTRAVENOUS
     Route: 042
     Dates: start: 20041210
  2. CEREBYX [Suspect]
  3. ACYCLOVIR [Concomitant]
  4. ACETYLCYSTEINE [Concomitant]
  5. AZTREONAM(AZTREONAM) [Concomitant]
  6. EPOETIN ALFA (EPOETIN ALFA) [Concomitant]
  7. FOLIC ACID [Concomitant]
  8. VITAMINS (VITAMINS) [Concomitant]
  9. INSULIN [Concomitant]
  10. ALBUTEROL SULFATE [Concomitant]
  11. LANSOPRAZOLE [Concomitant]
  12. LINEZOLID (LINEZOLID0 [Concomitant]
  13. METHYLPREDNISOLONE [Concomitant]

REACTIONS (1)
  - ANTICONVULSANT DRUG LEVEL DECREASED [None]
